FAERS Safety Report 9614362 (Version 1)
Quarter: 2013Q4

REPORT INFORMATION
  Report Type: Report from Study
  Country: CA (occurrence: CA)
  Receive Date: 20131011
  Receipt Date: 20131011
  Transmission Date: 20140711
  Serious: Yes (Hospitalization)
  Sender: FDA-Public Use
  Company Number: CA-JNJFOC-20131003192

PATIENT
  Age: 57 Year
  Sex: Male
  Weight: 83 kg

DRUGS (7)
  1. REMICADE [Suspect]
     Indication: CROHN^S DISEASE
     Dosage: THE PATIENT HAD 59 NUMBER OF INFUSIONS
     Route: 042
     Dates: start: 20110329
  2. HYDROMORPH CONTIN [Concomitant]
     Dosage: EVERY EVENING-NIGHT BED TIME
     Route: 065
  3. HYDROMORPH CONTIN [Concomitant]
     Dosage: EVERY MORNING
     Route: 065
  4. PENTASA [Concomitant]
     Dosage: 2 IN MORNING WITH FOOD AND 2 IN AFTERNOON WITH FOOD. 1-2 DOSES PER DAY
     Route: 065
  5. CIPRALEX [Concomitant]
     Indication: ANXIETY
     Dosage: MORNING AND EVENING
     Route: 065
  6. COVERSYL [Concomitant]
     Indication: BLOOD PRESSURE
     Dosage: AT EVENING
     Route: 065
  7. CLONAZEPAM [Concomitant]
     Route: 065

REACTIONS (5)
  - Hernia [Unknown]
  - Dehydration [Not Recovered/Not Resolved]
  - Blood potassium increased [Not Recovered/Not Resolved]
  - Renal impairment [Not Recovered/Not Resolved]
  - Infection [Not Recovered/Not Resolved]
